FAERS Safety Report 22302221 (Version 6)
Quarter: 2024Q2

REPORT INFORMATION
  Report Type: Spontaneous
  Country: FR (occurrence: FR)
  Receive Date: 20230510
  Receipt Date: 20240423
  Transmission Date: 20240715
  Serious: Yes (Death, Other)
  Sender: FDA-Public Use
  Company Number: None

PATIENT
  Age: 47 Year
  Sex: Male

DRUGS (8)
  1. ARIPIPRAZOLE [Suspect]
     Active Substance: ARIPIPRAZOLE
     Indication: Product used for unknown indication
     Dosage: UNK
     Route: 065
  2. DRONABINOL [Suspect]
     Active Substance: DRONABINOL
     Indication: Product used for unknown indication
     Dosage: UNK
     Route: 065
  3. METHADONE HYDROCHLORIDE [Suspect]
     Active Substance: METHADONE HYDROCHLORIDE
     Indication: Product used for unknown indication
     Dosage: UNK
     Route: 065
  4. METHYLPHENIDATE HYDROCHLORIDE [Suspect]
     Active Substance: METHYLPHENIDATE HYDROCHLORIDE
     Indication: Product used for unknown indication
     Dosage: UNK
     Route: 065
  5. PREGABALIN [Suspect]
     Active Substance: PREGABALIN
     Indication: Product used for unknown indication
     Dosage: UNK
     Route: 065
  6. TRIMEPRAZINE [Suspect]
     Active Substance: TRIMEPRAZINE
     Indication: Product used for unknown indication
     Dosage: UNK
     Route: 065
  7. COCAINE [Suspect]
     Active Substance: COCAINE
     Indication: Product used for unknown indication
     Dosage: UNK
     Route: 065
  8. OXAZEPAM [Suspect]
     Active Substance: OXAZEPAM
     Indication: Product used for unknown indication
     Dosage: UNK
     Route: 065

REACTIONS (8)
  - Poisoning [Fatal]
  - Intentional product misuse [Fatal]
  - Pulmonary oedema [Fatal]
  - Substance abuse [Fatal]
  - Toxicity to various agents [Fatal]
  - Tongue biting [Not Recovered/Not Resolved]
  - Regurgitation [Not Recovered/Not Resolved]
  - Drug level increased [Unknown]
